FAERS Safety Report 6496449-6 (Version None)
Quarter: 2009Q4

REPORT INFORMATION
  Report Type: 
  Country: None (occurrence: None)
  Receive Date: 20091214
  Receipt Date: 20091202
  Transmission Date: 20100525
  Serious: Yes (Hospitalization, Other)
  Sender: FDA-Public Use
  Company Number: GB-SANOFI-AVENTIS-2009SA006294

PATIENT
  Age: 66 Year
  Sex: Male

DRUGS (7)
  1. OXALIPLATIN [Suspect]
     Route: 041
     Dates: start: 20080709, end: 20080709
  2. CAPECITABINE [Suspect]
     Route: 065
     Dates: start: 20080709
  3. CAPECITABINE [Suspect]
     Route: 065
     Dates: end: 20090518
  4. ALL OTHER THERAPEUTIC PRODUCTS [Suspect]
     Route: 065
     Dates: start: 20080709, end: 20080709
  5. EPIRUBICIN [Suspect]
     Route: 065
     Dates: start: 20080709, end: 20080709
  6. METOCLOPRAMIDE [Concomitant]
  7. PARACETAMOL [Concomitant]

REACTIONS (7)
  - ARRHYTHMIA SUPRAVENTRICULAR [None]
  - ATRIAL FIBRILLATION [None]
  - DYSPNOEA [None]
  - INFECTION [None]
  - LETHARGY [None]
  - NODAL ARRHYTHMIA [None]
  - PYREXIA [None]
